FAERS Safety Report 13551702 (Version 4)
Quarter: 2017Q4

REPORT INFORMATION
  Report Type: Spontaneous
  Country: US (occurrence: US)
  Receive Date: 20170516
  Receipt Date: 20171204
  Transmission Date: 20180320
  Serious: No
  Sender: FDA-Public Use
  Company Number: US-ACTELION-A-US2017-149466

PATIENT
  Age: 64 Year
  Sex: Female
  Weight: 43.54 kg

DRUGS (5)
  1. ZOFRAN [Concomitant]
     Active Substance: ONDANSETRON HYDROCHLORIDE
     Indication: DIZZINESS
  2. ADCIRCA [Concomitant]
     Active Substance: TADALAFIL
  3. ZANAFLEX [Suspect]
     Active Substance: TIZANIDINE HYDROCHLORIDE
     Indication: PRODUCT USED FOR UNKNOWN INDICATION
     Route: 065
  4. OPSUMIT [Suspect]
     Active Substance: MACITENTAN
     Indication: PULMONARY HYPERTENSION
     Dosage: 10 MG, QD
     Route: 048
     Dates: start: 20160729
  5. OPSUMIT [Suspect]
     Active Substance: MACITENTAN
     Dosage: UNK
     Route: 048

REACTIONS (11)
  - Migraine [Unknown]
  - Malaise [Unknown]
  - Hypotension [Unknown]
  - Dizziness [Recovering/Resolving]
  - Asthenia [Unknown]
  - Fungal infection [Unknown]
  - Urinary tract infection [Unknown]
  - Dizziness postural [Unknown]
  - Vaginal infection [Unknown]
  - Fall [Unknown]
  - Fluid retention [Unknown]
